FAERS Safety Report 9321629 (Version 4)
Quarter: 2015Q2

REPORT INFORMATION
  Report Type: Report from Study
  Country: CN (occurrence: CN)
  Receive Date: 20130531
  Receipt Date: 20150413
  Transmission Date: 20150821
  Serious: Yes (Death, Hospitalization)
  Sender: FDA-Public Use
  Company Number: CN-SANOFI-AVENTIS-2013SA053659

PATIENT
  Age: 55 Year
  Sex: Male
  Weight: 68 kg

DRUGS (47)
  1. LEUCOVORIN [Suspect]
     Active Substance: LEUCOVORIN
     Indication: COLORECTAL CANCER METASTATIC
     Route: 042
     Dates: start: 20130501, end: 20130501
  2. 5-FU [Suspect]
     Active Substance: FLUOROURACIL
     Indication: COLORECTAL CANCER METASTATIC
     Route: 040
     Dates: start: 20130515, end: 20130515
  3. AMINO ACIDS NOS [Concomitant]
     Dates: start: 20130521
  4. AMINO ACIDS NOS [Concomitant]
     Dates: start: 20130504, end: 20130506
  5. LANSOPRAZOLE. [Concomitant]
     Active Substance: LANSOPRAZOLE
     Dates: start: 20130430, end: 20130506
  6. TRIGLYCERIDES [Concomitant]
     Dates: start: 20130521
  7. LEVOCARNITINE. [Concomitant]
     Active Substance: LEVOCARNITINE
     Dates: start: 20130522
  8. 5-FU [Suspect]
     Active Substance: FLUOROURACIL
     Indication: COLORECTAL CANCER METASTATIC
     Route: 041
     Dates: start: 20130501, end: 20130503
  9. AMINO ACIDS [Concomitant]
     Active Substance: AMINO ACIDS
     Dates: start: 20130503, end: 20130503
  10. AMINO ACIDS NOS [Concomitant]
     Dates: start: 20130512, end: 20130513
  11. TROPISETRON HYDROCHLORIDE [Concomitant]
     Active Substance: TROPISETRON HYDROCHLORIDE
     Dates: start: 20130514, end: 20130521
  12. TROPISETRON HYDROCHLORIDE [Concomitant]
     Active Substance: TROPISETRON HYDROCHLORIDE
     Dates: start: 20130430, end: 20130506
  13. OCTREOTIDE ACETATE. [Concomitant]
     Active Substance: OCTREOTIDE ACETATE
     Dates: start: 20130518
  14. SACCHAROMYCES BOULARDII [Concomitant]
     Active Substance: SACCHAROMYCES CEREVISIAE
     Dates: start: 20130522, end: 20130523
  15. GLUTAMINE [Concomitant]
     Active Substance: GLUTAMINE
     Dates: start: 20130522, end: 20130522
  16. IRINOTECAN [Suspect]
     Active Substance: IRINOTECAN
     Indication: COLORECTAL CANCER METASTATIC
     Route: 042
     Dates: start: 20130515, end: 20130515
  17. 5-FU [Suspect]
     Active Substance: FLUOROURACIL
     Indication: COLORECTAL CANCER METASTATIC
     Route: 040
     Dates: start: 20130501, end: 20130501
  18. ORNITHINE ASPARTATE [Concomitant]
     Active Substance: ORNITHINE ASPARTATE
     Dates: start: 20130425, end: 20130506
  19. GLYCYRRHIZIC ACID [Concomitant]
     Active Substance: GLYCYRRHIZIN
     Dates: start: 20130514
  20. COENZYME A [Concomitant]
     Active Substance: COENZYME A
     Dates: start: 20130514
  21. FATS NOS [Concomitant]
     Dates: start: 20130512, end: 20130513
  22. FATS NOS [Concomitant]
     Dates: start: 20130503, end: 20130503
  23. TRIGLYCERIDES [Concomitant]
     Dates: start: 20130503, end: 20130503
  24. ALBUMIN [Concomitant]
     Active Substance: ALBUMIN (HUMAN)
     Dates: start: 20130521, end: 20130523
  25. OCTREOTIDE [Concomitant]
     Active Substance: OCTREOTIDE
     Dates: start: 20130521
  26. 5-FU [Suspect]
     Active Substance: FLUOROURACIL
     Indication: COLORECTAL CANCER METASTATIC
     Route: 040
     Dates: start: 20130515, end: 20130515
  27. GLYCYRRHIZIC ACID [Concomitant]
     Active Substance: GLYCYRRHIZIN
     Dates: start: 20130425, end: 20130506
  28. AMINO ACIDS [Concomitant]
     Active Substance: AMINO ACIDS
     Dates: start: 20130512, end: 20130513
  29. VITAMINS NOS [Concomitant]
     Active Substance: VITAMINS
     Dates: start: 20130512
  30. VITAMINS NOS [Concomitant]
     Active Substance: VITAMINS
     Dates: start: 20130503, end: 20130503
  31. DIPHENHYDRAMINE HYDROCHLORIDE. [Concomitant]
     Active Substance: DIPHENHYDRAMINE HYDROCHLORIDE
     Dates: start: 20130515, end: 20130519
  32. LOPERAMIDE [Concomitant]
     Active Substance: LOPERAMIDE
     Dates: start: 20130517
  33. AFLIBERCEPT [Suspect]
     Active Substance: AFLIBERCEPT
     Indication: COLORECTAL CANCER METASTATIC
     Route: 042
     Dates: start: 20130501, end: 20130501
  34. IRINOTECAN [Suspect]
     Active Substance: IRINOTECAN
     Indication: COLORECTAL CANCER METASTATIC
     Route: 042
     Dates: start: 20130501, end: 20130501
  35. DIFENE [Concomitant]
     Active Substance: DICLOFENAC SODIUM
     Dates: start: 20130514
  36. HALOPERIDOL. [Concomitant]
     Active Substance: HALOPERIDOL
     Dates: start: 20130515, end: 20130519
  37. LANSOPRAZOLE. [Concomitant]
     Active Substance: LANSOPRAZOLE
     Dates: start: 20130514
  38. LEUCOVORIN [Suspect]
     Active Substance: LEUCOVORIN
     Indication: COLORECTAL CANCER METASTATIC
     Route: 042
     Dates: start: 20130515, end: 20130515
  39. OXYCODONE HYDROCHLORIDE. [Concomitant]
     Active Substance: OXYCODONE HYDROCHLORIDE
     Dates: start: 20130424
  40. COENZYME A [Concomitant]
     Active Substance: COENZYME A
     Dates: start: 20130425, end: 20130506
  41. LORAZEPAM. [Concomitant]
     Active Substance: LORAZEPAM
     Dates: start: 20130515, end: 20130519
  42. DEXAMETHASONE. [Concomitant]
     Active Substance: DEXAMETHASONE
     Dates: start: 20130519, end: 20130523
  43. DEXAMETHASONE. [Concomitant]
     Active Substance: DEXAMETHASONE
     Dates: start: 20130504, end: 20130506
  44. POTASSIUM PHOSPHATE MONOBASIC [Concomitant]
     Active Substance: POTASSIUM PHOSPHATE, MONOBASIC
     Dates: start: 20130520
  45. AFLIBERCEPT [Suspect]
     Active Substance: AFLIBERCEPT
     Indication: COLORECTAL CANCER METASTATIC
     Route: 042
     Dates: start: 20130515, end: 20130515
  46. ORNITHINE ASPARTATE [Concomitant]
     Active Substance: ORNITHINE ASPARTATE
     Dates: start: 20130514
  47. MINERAL SUPPLEMENTS [Concomitant]
     Active Substance: UNSPECIFIED INGREDIENT
     Dates: start: 20130518

REACTIONS (1)
  - Bone marrow failure [Fatal]

NARRATIVE: CASE EVENT DATE: 20130523
